FAERS Safety Report 10350989 (Version 1)
Quarter: 2014Q3

REPORT INFORMATION
  Report Type: Spontaneous
  Country: US (occurrence: US)
  Receive Date: 20140730
  Receipt Date: 20140730
  Transmission Date: 20150326
  Serious: Yes (Hospitalization, Other)
  Sender: FDA-Public Use
  Company Number: US-009507513-1407USA010174

PATIENT
  Sex: Female
  Weight: 82.54 kg

DRUGS (3)
  1. NUVARING [Suspect]
     Active Substance: ETHINYL ESTRADIOL\ETONOGESTREL
     Indication: MENORRHAGIA
  2. NUVARING [Suspect]
     Active Substance: ETHINYL ESTRADIOL\ETONOGESTREL
     Indication: CONTRACEPTION
     Dosage: UNK
     Route: 067
     Dates: start: 20110927, end: 20120725
  3. NUVARING [Suspect]
     Active Substance: ETHINYL ESTRADIOL\ETONOGESTREL
     Indication: MENSTRUAL CYCLE MANAGEMENT

REACTIONS (6)
  - Pneumonia [Unknown]
  - Factor V Leiden mutation [Not Recovered/Not Resolved]
  - Iron deficiency anaemia [Unknown]
  - Vitamin D deficiency [Unknown]
  - Pulmonary embolism [Unknown]
  - Kidney infection [Unknown]

NARRATIVE: CASE EVENT DATE: 201207
